FAERS Safety Report 12549565 (Version 1)
Quarter: 2016Q3

REPORT INFORMATION
  Report Type: Spontaneous
  Country: VE (occurrence: VE)
  Receive Date: 20160712
  Receipt Date: 20160712
  Transmission Date: 20161109
  Serious: Yes (Life-Threatening, Other)
  Sender: FDA-Public Use
  Company Number: PHHY2016VE095256

PATIENT
  Sex: Female

DRUGS (2)
  1. EXFORGE [Suspect]
     Active Substance: AMLODIPINE BESYLATE\VALSARTAN
     Indication: BLOOD PRESSURE ABNORMAL
     Dosage: 1 DF, (10 MG AMLODIPINE AND 320 MG VALSARTAN)
     Route: 048
  2. VALSARTAN. [Concomitant]
     Active Substance: VALSARTAN
     Indication: BLOOD PRESSURE ABNORMAL
     Dosage: (160 MG IN MORNING AND 160 MG IN EVENING)
     Route: 065

REACTIONS (4)
  - Blood pressure inadequately controlled [Unknown]
  - Blood pressure increased [Unknown]
  - Feeling abnormal [Unknown]
  - Wrong technique in product usage process [Unknown]
